FAERS Safety Report 4681860-6 (Version None)
Quarter: 2005Q2

REPORT INFORMATION
  Report Type: 
  Country: None (occurrence: None)
  Receive Date: 20050602
  Receipt Date: 20050513
  Transmission Date: 20051028
  Serious: Yes (Hospitalization, Disabling)
  Sender: FDA-Public Use
  Company Number: CA_050207739

PATIENT
  Age: 24 Year
  Sex: Female
  Weight: 58 kg

DRUGS (7)
  1. HUMATROPE [Suspect]
     Indication: TURNER'S SYNDROME
     Dosage: 0.5 MG/KG/ 6 WEEK
     Dates: start: 19890227, end: 19940430
  2. SYNTHROID [Concomitant]
  3. FLONASE [Concomitant]
  4. CETIRIZINE HCL [Concomitant]
  5. SALBUTAMOL [Concomitant]
  6. FLOVENT [Concomitant]
  7. ORTHO TRI-CYCLEN [Concomitant]

REACTIONS (5)
  - CATHETER RELATED INFECTION [None]
  - CEREBRAL CYST [None]
  - INTRACRANIAL PRESSURE INCREASED [None]
  - OBSTRUCTION [None]
  - URINARY TRACT INFECTION [None]
